FAERS Safety Report 6401471-1 (Version None)
Quarter: 2009Q4

REPORT INFORMATION
  Report Type: 
  Country: None (occurrence: None)
  Receive Date: 20091015
  Receipt Date: 20091009
  Transmission Date: 20100525
  Serious: Yes (Life-Threatening, Hospitalization)
  Sender: FDA-Public Use
  Company Number: US-BRISTOL-MYERS SQUIBB COMPANY-14813828

PATIENT
  Age: 46 Year
  Sex: Female

DRUGS (8)
  1. ERBITUX [Suspect]
     Indication: METASTATIC GASTRIC CANCER
     Dosage: 400MG/M2
     Dates: start: 20091001
  2. TAXOTERE [Suspect]
     Indication: METASTATIC GASTRIC CANCER
     Dosage: 60 MG/M2
     Route: 042
     Dates: start: 20090930
  3. LOVENOX [Concomitant]
  4. DURAGESIC-100 [Concomitant]
  5. CARDIZEM [Concomitant]
  6. FLAGYL [Concomitant]
  7. BENTYL [Concomitant]
  8. LACTINEX [Concomitant]

REACTIONS (2)
  - HYPOTENSION [None]
  - TACHYCARDIA [None]
